FAERS Safety Report 4817714-1 (Version None)
Quarter: 2005Q4

REPORT INFORMATION
  Report Type: 
  Country: None (occurrence: None)
  Receive Date: 20051101
  Receipt Date: 20051101
  Transmission Date: 20060501
  Serious: Yes (Other)
  Sender: FDA-Public Use
  Company Number: None

PATIENT
  Age: 43 Year
  Sex: Male
  Weight: 83.9154 kg

DRUGS (3)
  1. OXYCONTIN [Suspect]
     Dosage: 2 PO BID
     Route: 048
     Dates: start: 20050301
  2. PERCOCET [Suspect]
     Indication: INTERVERTEBRAL DISC DEGENERATION
     Dosage: 1 PO QID
     Route: 048
     Dates: start: 20050301
  3. VALIUM [Concomitant]

REACTIONS (1)
  - OEDEMA PERIPHERAL [None]
